FAERS Safety Report 24680527 (Version 2)
Quarter: 2024Q4

REPORT INFORMATION
  Report Type: Spontaneous
  Country: NO (occurrence: NO)
  Receive Date: 20241129
  Receipt Date: 20241211
  Transmission Date: 20250115
  Serious: Yes (Hospitalization, Other)
  Sender: PFIZER
  Company Number: None

PATIENT
  Age: 16 Month
  Sex: Male
  Weight: 10 kg

DRUGS (2)
  1. AZITHROMYCIN ANHYDROUS [Suspect]
     Active Substance: AZITHROMYCIN ANHYDROUS
     Indication: Neuroendocrine cell hyperplasia of infancy
     Dosage: 2.5 ML THREE TIMES PER WEEK: MONDAY, WEDNESDAY AND FRIDAY
     Route: 048
     Dates: start: 20241002, end: 20241105
  2. PULMICORT TURBUHALER [Concomitant]
     Active Substance: BUDESONIDE
     Indication: Obstructive airways disorder
     Dosage: 0.1 ML, 2X/DAY
     Dates: start: 20241101

REACTIONS (7)
  - Bradycardia [Recovered/Resolved]
  - Hypothermia [Recovered/Resolved]
  - Peripheral coldness [Recovered/Resolved]
  - Cold sweat [Recovered/Resolved]
  - Iron deficiency [Unknown]
  - Respiratory rate decreased [Recovered/Resolved]
  - Off label use [Unknown]

NARRATIVE: CASE EVENT DATE: 20240101
